FAERS Safety Report 8659376 (Version 2)
Quarter: 2012Q4

REPORT INFORMATION
  Report Type: 
  Country: PT (occurrence: PT)
  Receive Date: 20120711
  Receipt Date: 20121107
  Transmission Date: 20130627
  Serious: Yes (Other)
  Sender: FDA-Public Use
  Company Number: PT-JNJFOC-20120702463

PATIENT
  Age: 48 Year
  Sex: Female

DRUGS (4)
  1. GOLIMUMAB [Suspect]
     Indication: RHEUMATOID ARTHRITIS
     Route: 058
     Dates: start: 20111110
  2. METHOTREXATE [Concomitant]
     Indication: RHEUMATOID ARTHRITIS
     Route: 065
  3. PREDNISONE [Concomitant]
     Indication: RHEUMATOID ARTHRITIS
     Route: 065
  4. IRON [Concomitant]
     Indication: ANAEMIA
     Route: 065

REACTIONS (3)
  - Bone erosion [Not Recovered/Not Resolved]
  - Coccydynia [Not Recovered/Not Resolved]
  - Drug ineffective [Not Recovered/Not Resolved]
